FAERS Safety Report 5427789-7 (Version None)
Quarter: 2007Q3

REPORT INFORMATION
  Report Type: 
  Country: None (occurrence: None)
  Receive Date: 20070828
  Receipt Date: 20070703
  Transmission Date: 20080115
  Serious: Yes (Other)
  Sender: FDA-Public Use
  Company Number: US-PURDUE-USA_2007_0028507

PATIENT
  Sex: Male
  Weight: 82 kg

DRUGS (8)
  1. OXYCONTIN [Suspect]
     Indication: PAIN
     Dosage: 20 MG, BID
     Dates: start: 20001005, end: 20011201
  2. METFORMIN HYDROCHLORIDE [Concomitant]
  3. ZOLOFT [Concomitant]
  4. HUMULIN 70/30 [Concomitant]
  5. DIAZEPAM [Concomitant]
  6. ENALAPRIL [Concomitant]
  7. ARTHROTEC [Concomitant]
  8. KLOR-CON [Concomitant]

REACTIONS (29)
  - AGGRESSION [None]
  - AGITATION [None]
  - ANGER [None]
  - ANXIETY [None]
  - ATRIOVENTRICULAR BLOCK [None]
  - CHEST PAIN [None]
  - CHILLS [None]
  - COLD SWEAT [None]
  - DEPRESSION [None]
  - DRUG ABUSER [None]
  - DRUG DEPENDENCE [None]
  - DRUG WITHDRAWAL SYNDROME [None]
  - DYSPNOEA [None]
  - EMOTIONAL DISORDER [None]
  - EUPHORIC MOOD [None]
  - FAMILY STRESS [None]
  - FEELING COLD [None]
  - HYPERHIDROSIS [None]
  - INADEQUATE ANALGESIA [None]
  - INTENTIONAL DRUG MISUSE [None]
  - IRRITABILITY [None]
  - MOOD ALTERED [None]
  - MOOD SWINGS [None]
  - NECK PAIN [None]
  - PAIN [None]
  - PALPITATIONS [None]
  - SCREAMING [None]
  - TREMOR [None]
  - VERBAL ABUSE [None]
